FAERS Safety Report 9448530 (Version 2)
Quarter: 2013Q3

REPORT INFORMATION
  Report Type: Spontaneous
  Country: JP (occurrence: JP)
  Receive Date: 20130808
  Receipt Date: 20130815
  Transmission Date: 20140515
  Serious: Yes (Hospitalization, Other)
  Sender: FDA-Public Use
  Company Number: JP-ELI_LILLY_AND_COMPANY-JP201304004281

PATIENT
  Age: 85 Year
  Sex: Female

DRUGS (1)
  1. FORTEO [Suspect]
     Indication: OSTEOPOROSIS
     Dosage: 20 UG, QD
     Route: 058
     Dates: start: 2013, end: 201307

REACTIONS (6)
  - Heat illness [Recovering/Resolving]
  - Lung neoplasm malignant [Unknown]
  - Bone cancer [Unknown]
  - Malaise [Unknown]
  - Bone pain [Unknown]
  - Medication error [Unknown]
